FAERS Safety Report 19954978 (Version 3)
Quarter: 2021Q4

REPORT INFORMATION
  Report Type: Report from Study
  Country: US (occurrence: US)
  Receive Date: 20211013
  Receipt Date: 20211026
  Transmission Date: 20220304
  Serious: Yes (Hospitalization, Other)
  Sender: FDA-Public Use
  Company Number: US-BRISTOL-MYERS SQUIBB COMPANY-BMS-2021-100952

PATIENT
  Age: 6 Year
  Sex: Male

DRUGS (4)
  1. NIVOLUMAB [Suspect]
     Active Substance: NIVOLUMAB
     Indication: Glioma
     Dosage: UNK
     Route: 065
     Dates: start: 20210713
  2. INVESTIGATIONAL PRODUCT [Suspect]
     Active Substance: INVESTIGATIONAL PRODUCT
     Indication: Glioma
     Dosage: UNK
     Route: 065
     Dates: start: 20210713
  3. HILTONOL [Suspect]
     Active Substance: HILTONOL
     Indication: Glioma
     Dosage: UNK
     Route: 065
     Dates: start: 20210713
  4. TETANUS TOXOID ADSORBED (VACCINE) [Suspect]
     Active Substance: CLOSTRIDIUM TETANI TOXOID ANTIGEN (FORMALDEHYDE INACTIVATED)
     Indication: Glioma
     Dosage: UNK
     Route: 065
     Dates: start: 20210713

REACTIONS (1)
  - Hemiparesis [Not Recovered/Not Resolved]

NARRATIVE: CASE EVENT DATE: 20210921
